FAERS Safety Report 5956991-0 (Version None)
Quarter: 2008Q4

REPORT INFORMATION
  Report Type: 
  Country: None (occurrence: None)
  Receive Date: 20081118
  Receipt Date: 20080729
  Transmission Date: 20090506
  Serious: No
  Sender: FDA-Public Use
  Company Number: A0739888A

PATIENT
  Age: 87 Year
  Sex: Female

DRUGS (1)
  1. COREG CR [Suspect]
     Route: 048

REACTIONS (6)
  - BALANCE DISORDER [None]
  - DIZZINESS [None]
  - DYSPNOEA [None]
  - FATIGUE [None]
  - MALAISE [None]
  - PAIN IN EXTREMITY [None]
